FAERS Safety Report 11742868 (Version 7)
Quarter: 2019Q1

REPORT INFORMATION
  Report Type: Spontaneous
  Country: FR (occurrence: FR)
  Receive Date: 20151116
  Receipt Date: 20190214
  Transmission Date: 20190417
  Serious: Yes (Disabling, Congenital Anomaly, Other)
  Sender: FDA-Public Use
  Company Number: FR-ABBVIE-15P-056-1500252-00

PATIENT
  Sex: Female
  Weight: 2.74 kg

DRUGS (2)
  1. MICROPAKING L.P. [Suspect]
     Active Substance: VALPROATE SODIUM
     Indication: MATERNAL EXPOSURE TIMING UNSPECIFIED
     Route: 064
  2. DEPAKINE CHRONO [Suspect]
     Active Substance: VALPROATE SODIUM
     Indication: MATERNAL EXPOSURE TIMING UNSPECIFIED
     Route: 064

REACTIONS (34)
  - Psychomotor skills impaired [Not Recovered/Not Resolved]
  - Myopia [Unknown]
  - Dysmorphism [Not Recovered/Not Resolved]
  - Tooth development disorder [Not Recovered/Not Resolved]
  - Refraction disorder [Unknown]
  - Developmental delay [Not Recovered/Not Resolved]
  - Skull malformation [Not Recovered/Not Resolved]
  - Foot deformity [Not Recovered/Not Resolved]
  - Low set ears [Not Recovered/Not Resolved]
  - Foetal exposure during pregnancy [Unknown]
  - Heart disease congenital [Not Recovered/Not Resolved]
  - Dyspraxia [Not Recovered/Not Resolved]
  - Motor developmental delay [Unknown]
  - Urinary incontinence [Not Recovered/Not Resolved]
  - Anal incontinence [Not Recovered/Not Resolved]
  - Language disorder [Not Recovered/Not Resolved]
  - Foetal anticonvulsant syndrome [Not Recovered/Not Resolved]
  - Talipes [Not Recovered/Not Resolved]
  - Lip disorder [Not Recovered/Not Resolved]
  - Loss of personal independence in daily activities [Not Recovered/Not Resolved]
  - Social avoidant behaviour [Not Recovered/Not Resolved]
  - Congenital tongue anomaly [Not Recovered/Not Resolved]
  - Foot deformity [Recovered/Resolved]
  - Plagiocephaly [Not Recovered/Not Resolved]
  - Visual impairment [Not Recovered/Not Resolved]
  - Neonatal respiratory distress syndrome [Unknown]
  - Hypotonia neonatal [Recovering/Resolving]
  - Strabismus [Unknown]
  - Joint hyperextension [Recovered/Resolved]
  - Congenital nose malformation [Not Recovered/Not Resolved]
  - Congenital infection [Not Recovered/Not Resolved]
  - Ill-defined disorder [Unknown]
  - Astigmatism [Unknown]
  - Dysmorphism [Not Recovered/Not Resolved]

NARRATIVE: CASE EVENT DATE: 20091021
